FAERS Safety Report 22325033 (Version 1)
Quarter: 2023Q2

REPORT INFORMATION
  Report Type: Report from Study
  Country: SE (occurrence: SE)
  Receive Date: 20230516
  Receipt Date: 20230516
  Transmission Date: 20230722
  Serious: Yes (Other)
  Sender: FDA-Public Use
  Company Number: SE-ABBVIE-4767452

PATIENT
  Sex: Male

DRUGS (3)
  1. CARBIDOPA\LEVODOPA [Suspect]
     Active Substance: CARBIDOPA\LEVODOPA
     Indication: Parkinson^s disease
     Dosage: THERAPY DURATION: REMAINS AT 24H?MORNING DOSE: 3ML, CONTINUOUS DOSE (AROUND THE CLOCK): 4.8ML/H, ...
     Route: 050
     Dates: start: 20220608
  2. CARBIDOPA\LEVODOPA [Suspect]
     Active Substance: CARBIDOPA\LEVODOPA
     Dosage: CURRENT DOSAGE: CONTINUOUS DOSE: 5.0 ML/H. TAKES ABOUT 2-3 EXTRA DOSES PER DAY.
     Route: 050
     Dates: start: 20230512
  3. CARBIDOPA\ENTACAPONE\LEVODOPA [Suspect]
     Active Substance: CARBIDOPA\ENTACAPONE\LEVODOPA
     Indication: Parkinson^s disease
     Dosage: START DATE TEXT: SINCE JAN-FEB 2021
     Route: 065

REACTIONS (5)
  - Cardiac failure [Recovering/Resolving]
  - Myocardial infarction [Recovering/Resolving]
  - COVID-19 [Recovered/Resolved]
  - Dizziness [Not Recovered/Not Resolved]
  - Balance disorder [Not Recovered/Not Resolved]

NARRATIVE: CASE EVENT DATE: 20210101
